FAERS Safety Report 25594544 (Version 1)
Quarter: 2025Q3

REPORT INFORMATION
  Report Type: Spontaneous
  Country: US (occurrence: US)
  Receive Date: 20250723
  Receipt Date: 20250723
  Transmission Date: 20251021
  Serious: Yes (Other)
  Sender: SANOFI AVENTIS
  Company Number: US-SANOFI-02593951

PATIENT
  Age: 71 Year
  Sex: Male

DRUGS (1)
  1. LANTUS SOLOSTAR [Suspect]
     Active Substance: INSULIN GLARGINE
     Indication: Type 2 diabetes mellitus
     Dosage: 35 IU, BID
     Dates: start: 2024

REACTIONS (4)
  - Dementia [Unknown]
  - Off label use [Unknown]
  - Product preparation error [Unknown]
  - Physical product label issue [Unknown]

NARRATIVE: CASE EVENT DATE: 20240101
